FAERS Safety Report 15482873 (Version 2)
Quarter: 2018Q4

REPORT INFORMATION
  Report Type: Report from Study
  Country: US (occurrence: US)
  Receive Date: 20181010
  Receipt Date: 20181210
  Transmission Date: 20190205
  Serious: No
  Sender: FDA-Public Use
  Company Number: US-SA-2018SA278858

PATIENT
  Age: 61 Year
  Sex: Female

DRUGS (2)
  1. LIVALO [Suspect]
     Active Substance: PITAVASTATIN CALCIUM
  2. ALIROCUMAB [Suspect]
     Active Substance: ALIROCUMAB
     Indication: HYPERCHOLESTEROLAEMIA
     Dosage: UNK UNK, QOW
     Route: 058
     Dates: start: 20180915

REACTIONS (7)
  - Muscle disorder [Unknown]
  - Glycosylated haemoglobin increased [Unknown]
  - Weight increased [Unknown]
  - Blood glucose increased [Unknown]
  - Muscular weakness [Unknown]
  - Hepatic enzyme increased [Unknown]
  - Meniscus injury [Unknown]

NARRATIVE: CASE EVENT DATE: 2018
